FAERS Safety Report 13124097 (Version 2)
Quarter: 2017Q1

REPORT INFORMATION
  Report Type: Spontaneous
  Country: JP (occurrence: JP)
  Receive Date: 20170118
  Receipt Date: 20170206
  Transmission Date: 20170428
  Serious: Yes (Hospitalization, Other)
  Sender: FDA-Public Use
  Company Number: JP-SUN PHARMACEUTICAL INDUSTRIES LTD-2017RR-131597

PATIENT
  Age: 58 Year
  Sex: Female

DRUGS (6)
  1. FUROSEMIDE. [Suspect]
     Active Substance: FUROSEMIDE
     Dosage: 40 MG, DAILY
     Route: 065
  2. SPIRONOLACTONE. [Suspect]
     Active Substance: SPIRONOLACTONE
     Indication: PORTOPULMONARY HYPERTENSION
     Dosage: 100 MG, DAILY
     Route: 065
  3. FUROSEMIDE. [Suspect]
     Active Substance: FUROSEMIDE
     Indication: PORTOPULMONARY HYPERTENSION
     Dosage: 80 MG, DAILY
     Route: 065
  4. BOSENTAN. [Suspect]
     Active Substance: BOSENTAN
     Indication: PORTOPULMONARY HYPERTENSION
     Dosage: 62.5 MG, DAILY
     Route: 065
  5. SILDENAFIL. [Concomitant]
     Active Substance: SILDENAFIL
     Indication: PORTOPULMONARY HYPERTENSION
     Dosage: 20 MG, TID
     Route: 065
  6. AMBRISENTAN [Concomitant]
     Active Substance: AMBRISENTAN
     Indication: PORTOPULMONARY HYPERTENSION
     Dosage: 5 MG, QD
     Route: 065

REACTIONS (5)
  - Hepatotoxicity [Unknown]
  - Electrolyte imbalance [Recovered/Resolved]
  - Hyponatraemia [Recovered/Resolved]
  - Hypokalaemia [Recovered/Resolved]
  - Drug ineffective [Unknown]
